FAERS Safety Report 26050545 (Version 1)
Quarter: 2025Q4

REPORT INFORMATION
  Report Type: Report from Study
  Country: CL (occurrence: CL)
  Receive Date: 20251116
  Receipt Date: 20251116
  Transmission Date: 20260118
  Serious: Yes (Hospitalization, Other)
  Sender: JOHNSON AND JOHNSON
  Company Number: CL-JNJFOC-20251159093

PATIENT
  Age: 49 Year
  Sex: Female

DRUGS (1)
  1. SIMPONI [Suspect]
     Active Substance: GOLIMUMAB
     Indication: Colitis ulcerative
     Route: 058
     Dates: start: 20240805

REACTIONS (3)
  - Pneumonia [Recovering/Resolving]
  - Bacteraemia [Recovering/Resolving]
  - Influenza [Recovering/Resolving]
